FAERS Safety Report 6345595-6 (Version None)
Quarter: 2009Q3

REPORT INFORMATION
  Report Type: 
  Country: None (occurrence: None)
  Receive Date: 20090821
  Receipt Date: 20090701
  Transmission Date: 20100115
  Serious: Yes (Hospitalization)
  Sender: FDA-Public Use
  Company Number: 8048483

PATIENT
  Age: 51 Year
  Sex: Male

DRUGS (1)
  1. CIMZIA [Suspect]
     Dosage: 400 MG
     Dates: start: 20090227

REACTIONS (2)
  - ARTHRALGIA [None]
  - EXTRASYSTOLES [None]
